FAERS Safety Report 6223771-0 (Version None)
Quarter: 2009Q2

REPORT INFORMATION
  Report Type: 
  Country: None (occurrence: None)
  Receive Date: 20090611
  Receipt Date: 20090515
  Transmission Date: 20091009
  Serious: No
  Sender: FDA-Public Use
  Company Number: US-ABBOTT-09P-163-0500545-00

PATIENT
  Sex: Female
  Weight: 86.26 kg

DRUGS (2)
  1. HUMIRA [Suspect]
     Indication: PSORIASIS
     Dates: start: 20080901
  2. HUMIRA [Suspect]
     Dates: end: 20090101

REACTIONS (3)
  - CONJUNCTIVITIS [None]
  - MALAISE [None]
  - TOOTH INFECTION [None]
